FAERS Safety Report 6286739-4 (Version None)
Quarter: 2009Q3

REPORT INFORMATION
  Report Type: 
  Country: None (occurrence: None)
  Receive Date: 20090728
  Receipt Date: 20090721
  Transmission Date: 20100115
  Serious: Yes (Other)
  Sender: FDA-Public Use
  Company Number: FR-AVENTIS-200912702FR

PATIENT
  Age: 85 Year
  Sex: Female
  Weight: 64 kg

DRUGS (4)
  1. LOVENOX [Suspect]
     Indication: THROMBOSIS PROPHYLAXIS
     Route: 058
     Dates: start: 20090617, end: 20090619
  2. CALCIPARINE [Suspect]
     Indication: THROMBOSIS PROPHYLAXIS
     Route: 058
     Dates: start: 20090607, end: 20090616
  3. CIPROFLOXACIN HCL [Concomitant]
     Route: 048
     Dates: start: 20090616, end: 20090620
  4. FLAGYL [Concomitant]
     Route: 048
     Dates: start: 20090616, end: 20090620

REACTIONS (4)
  - ECZEMA [None]
  - INJECTION SITE RASH [None]
  - PRURITUS [None]
  - RASH [None]
